FAERS Safety Report 9240697 (Version 1)
Quarter: 2013Q1

REPORT INFORMATION
  Report Type: Spontaneous
  Country: US (occurrence: None)
  Receive Date: 20121120
  Receipt Date: 20121120
  Transmission Date: 20140127
  Serious: No
  Sender: FDA-Public Use
  Company Number: 1000038860

PATIENT
  Age: 27 Year
  Sex: Female

DRUGS (5)
  1. VIIBRYD [Suspect]
     Indication: DEPRESSION
     Route: 048
     Dates: start: 20120920, end: 20120920
  2. PANTOPRAZOLE (PANTOPRAZOLE) [Concomitant]
  3. MIDODRINE (MIDODRINE) [Concomitant]
  4. WELLBUTRIN (BUPROPION HYDROCHLORIDE) [Concomitant]
  5. ORTHO TRI-CYCLEN [Concomitant]

REACTIONS (7)
  - Tremor [None]
  - Palpitations [None]
  - Vision blurred [None]
  - Dizziness [None]
  - Nausea [None]
  - Fatigue [None]
  - Dyspnoea [None]
